FAERS Safety Report 12936418 (Version 1)
Quarter: 2016Q4

REPORT INFORMATION
  Report Type: Spontaneous
  Country: JP (occurrence: JP)
  Receive Date: 20161114
  Receipt Date: 20161114
  Transmission Date: 20170207
  Serious: Yes (Other)
  Sender: FDA-Public Use
  Company Number: JP-009507513-1611JPN002902

PATIENT
  Age: 63 Year
  Sex: Male

DRUGS (2)
  1. SOVALDI [Suspect]
     Active Substance: SOFOSBUVIR
     Dosage: DAILY DOSAGE UNKNOWN
     Route: 048
     Dates: start: 20161007
  2. REBETOL [Suspect]
     Active Substance: RIBAVIRIN
     Dosage: DAILY DOSAGE UNKNOWN
     Route: 048
     Dates: start: 20161007

REACTIONS (4)
  - Asthenia [Unknown]
  - Hepatic cirrhosis [Unknown]
  - Hyperammonaemia [Unknown]
  - Hepatic encephalopathy [Unknown]

NARRATIVE: CASE EVENT DATE: 201610
